FAERS Safety Report 4937138-6 (Version None)
Quarter: 2006Q1

REPORT INFORMATION
  Report Type: 
  Country: None (occurrence: None)
  Receive Date: 20060302
  Receipt Date: 20060217
  Transmission Date: 20060701
  Serious: Yes (Other)
  Sender: FDA-Public Use
  Company Number: 222161

PATIENT
  Age: 65 Year
  Sex: Female

DRUGS (3)
  1. MABTHERA (RITUXIMAB) CONC FOR SOLUTION FOR INFUSION [Suspect]
     Indication: ANAEMIA HAEMOLYTIC AUTOIMMUNE
  2. VOLTAREN [Suspect]
     Indication: ANALGESIC EFFECT
     Dosage: 50 MG, RECTAL
     Route: 054
  3. TRANSFUSION NOS (TRANSFUSION NOS) [Concomitant]

REACTIONS (6)
  - ARTHRALGIA [None]
  - DIALYSIS [None]
  - INFLUENZA LIKE ILLNESS [None]
  - NEPHRITIS INTERSTITIAL [None]
  - RENAL FAILURE ACUTE [None]
  - VIRAL INFECTION [None]
